FAERS Safety Report 20009270 (Version 1)
Quarter: 2021Q4

REPORT INFORMATION
  Report Type: Spontaneous
  Country: US (occurrence: US)
  Receive Date: 20211029
  Receipt Date: 20211029
  Transmission Date: 20220304
  Serious: No
  Sender: FDA-Public Use
  Company Number: US-SANOFI-00827158

PATIENT
  Sex: Male

DRUGS (2)
  1. LANTUS SOLOSTAR [Suspect]
     Active Substance: INSULIN GLARGINE
     Dosage: UNK
     Route: 065
     Dates: start: 2021
  2. SODIUM [Concomitant]
     Active Substance: SODIUM
     Dosage: UNK
     Route: 065

REACTIONS (1)
  - Fear of injection [Unknown]

NARRATIVE: CASE EVENT DATE: 20210101
